FAERS Safety Report 5946537-5 (Version None)
Quarter: 2008Q4

REPORT INFORMATION
  Report Type: 
  Country: None (occurrence: None)
  Receive Date: 20081110
  Receipt Date: 20081104
  Transmission Date: 20090506
  Serious: Yes (Death, Hospitalization)
  Sender: FDA-Public Use
  Company Number: B0545149A

PATIENT
  Age: 68 Year
  Sex: Male
  Weight: 81.2 kg

DRUGS (3)
  1. TOPOTECAN [Suspect]
     Route: 042
     Dates: start: 20070723, end: 20070727
  2. PREDNISOLONE [Concomitant]
     Route: 048
  3. RADIOTHERAPY [Concomitant]
     Indication: VENOUS OCCLUSION
     Route: 065
     Dates: start: 20070207, end: 20070626

REACTIONS (7)
  - DRUG TOXICITY [None]
  - LUNG INFILTRATION [None]
  - NEUTROPENIA [None]
  - PNEUMONIA [None]
  - PYREXIA [None]
  - RESPIRATORY FAILURE [None]
  - THROMBOCYTOPENIA [None]
